FAERS Safety Report 7245408-4 (Version None)
Quarter: 2011Q1

REPORT INFORMATION
  Report Type: 
  Country: None (occurrence: None)
  Receive Date: 20110126
  Receipt Date: 20110119
  Transmission Date: 20110831
  Serious: Yes (Hospitalization, Congenital Anomaly, Other)
  Sender: FDA-Public Use
  Company Number: US-PFIZER INC-2010169105

PATIENT
  Sex: Male
  Weight: 3.35 kg

DRUGS (3)
  1. EFFEXOR XR [Suspect]
     Indication: DEPRESSION
     Dosage: UNK
     Route: 064
     Dates: start: 20050627, end: 20090601
  2. PRENATAL VITAMINS [Concomitant]
     Dosage: UNK
     Route: 064
  3. ZOLOFT [Suspect]
     Indication: DEPRESSION
     Dosage: UNK
     Route: 064
     Dates: start: 20030227, end: 20100101

REACTIONS (16)
  - TRANSPOSITION OF THE GREAT VESSELS [None]
  - CARDIOMEGALY [None]
  - PULMONARY HYPERTENSION [None]
  - DRUG EXPOSURE DURING PREGNANCY [None]
  - PHIMOSIS [None]
  - SUPRAVENTRICULAR TACHYCARDIA [None]
  - VENTRICULAR SEPTAL DEFECT [None]
  - RESPIRATORY DISTRESS [None]
  - ATRIAL SEPTAL DEFECT [None]
  - PATENT DUCTUS ARTERIOSUS [None]
  - PULMONARY ARTERY STENOSIS CONGENITAL [None]
  - PULMONARY HYPOPLASIA [None]
  - LEFT VENTRICULAR HYPERTROPHY [None]
  - TACHYPNOEA [None]
  - ECCHYMOSIS [None]
  - ECZEMA [None]
